FAERS Safety Report 14558959 (Version 2)
Quarter: 2018Q1

REPORT INFORMATION
  Report Type: Spontaneous
  Country: US (occurrence: US)
  Receive Date: 20180221
  Receipt Date: 20180330
  Transmission Date: 20180509
  Serious: Yes (Death, Other)
  Sender: FDA-Public Use
  Company Number: US-SAOL THERAPEUTICS-2018SAO00224

PATIENT
  Sex: Male
  Weight: 73.47 kg

DRUGS (1)
  1. LIORESAL [Suspect]
     Active Substance: BACLOFEN
     Dosage: 441 ?G, \DAY
     Route: 037

REACTIONS (3)
  - Fall [Not Recovered/Not Resolved]
  - Abdominal injury [Fatal]
  - Craniocerebral injury [Not Recovered/Not Resolved]
